FAERS Safety Report 7558316-6 (Version None)
Quarter: 2011Q2

REPORT INFORMATION
  Report Type: 
  Country: None (occurrence: None)
  Receive Date: 20110620
  Receipt Date: 20110610
  Transmission Date: 20111010
  Serious: Yes (Death, Hospitalization)
  Sender: FDA-Public Use
  Company Number: IT-ELI_LILLY_AND_COMPANY-IT201106004000

PATIENT

DRUGS (6)
  1. EMEND [Concomitant]
     Dosage: 125 MG + 80 MG FOR 2 DAYS, OTHER
     Route: 048
     Dates: start: 20110519, end: 20110521
  2. CISPLATIN [Concomitant]
     Dosage: 120 MG, UNKNOWN
     Route: 042
     Dates: start: 20110519, end: 20110519
  3. LANSOPRAZOLE [Concomitant]
     Dosage: 30 MG, UNKNOWN
     Route: 048
     Dates: start: 20110303, end: 20110303
  4. MYELOSTIM [Concomitant]
     Dosage: 33.6 MILLION IU, UNKNOWN
     Route: 058
     Dates: start: 20110522, end: 20110524
  5. ALIMTA [Suspect]
     Indication: NON-SMALL CELL LUNG CANCER
     Dosage: 830 MG, UNKNOWN
     Route: 042
     Dates: start: 20110519
  6. DEXAMETHASONE SODIUM PHOSPHATE [Concomitant]
     Dosage: 8 MG, UNKNOWN
     Route: 048
     Dates: start: 20110303, end: 20110604

REACTIONS (5)
  - ASTHENIA [None]
  - THROMBOCYTOPENIA [None]
  - LEUKOPENIA [None]
  - DECREASED APPETITE [None]
  - HYPERGLYCAEMIA [None]
